FAERS Safety Report 4338463-2 (Version None)
Quarter: 2004Q2

REPORT INFORMATION
  Report Type: 
  Country: None (occurrence: None)
  Receive Date: 20040409
  Receipt Date: 20040402
  Transmission Date: 20050107
  Serious: Yes (Life-Threatening)
  Sender: FDA-Public Use
  Company Number: 7745

PATIENT
  Age: 34 Year
  Sex: Male

DRUGS (2)
  1. METHOTREXATE [Suspect]
     Indication: LYMPHOMA
     Dosage: 1200 MG ONCE IT
     Route: 037
  2. HYDROCORTISONE [Concomitant]

REACTIONS (11)
  - ACUTE RESPIRATORY DISTRESS SYNDROME [None]
  - AGITATION [None]
  - AGRANULOCYTOSIS [None]
  - BACK PAIN [None]
  - COMA [None]
  - CONFUSIONAL STATE [None]
  - GRAND MAL CONVULSION [None]
  - LYMPHOMA [None]
  - MALIGNANT NEOPLASM PROGRESSION [None]
  - OVERDOSE [None]
  - SEPSIS [None]
